FAERS Safety Report 10644922 (Version 23)
Quarter: 2018Q3

REPORT INFORMATION
  Report Type: Spontaneous
  Country: CA (occurrence: CA)
  Receive Date: 20141211
  Receipt Date: 20180803
  Transmission Date: 20181010
  Serious: Yes (Hospitalization, Other)
  Sender: FDA-Public Use
  Company Number: CA-ROCHE-1262889

PATIENT
  Age: 63 Year
  Sex: Male
  Weight: 80 kg

DRUGS (14)
  1. VENTOLIN [Concomitant]
     Active Substance: ALBUTEROL SULFATE
     Indication: PRODUCT USED FOR UNKNOWN INDICATION
     Route: 065
  2. XOLAIR [Suspect]
     Active Substance: OMALIZUMAB
     Route: 058
     Dates: start: 20160614
  3. XOLAIR [Suspect]
     Active Substance: OMALIZUMAB
     Route: 058
     Dates: start: 20171109
  4. XOLAIR [Suspect]
     Active Substance: OMALIZUMAB
     Route: 058
     Dates: start: 20170831
  5. XOLAIR [Suspect]
     Active Substance: OMALIZUMAB
     Route: 058
     Dates: start: 20180412
  6. XOLAIR [Suspect]
     Active Substance: OMALIZUMAB
     Route: 058
     Dates: start: 20150324
  7. XOLAIR [Suspect]
     Active Substance: OMALIZUMAB
     Route: 058
     Dates: start: 20160712
  8. XOLAIR [Suspect]
     Active Substance: OMALIZUMAB
     Indication: ASTHMA
     Route: 058
     Dates: start: 20101129
  9. XOLAIR [Suspect]
     Active Substance: OMALIZUMAB
     Route: 058
     Dates: start: 20161212
  10. XOLAIR [Suspect]
     Active Substance: OMALIZUMAB
     Route: 058
     Dates: start: 20170928
  11. SPIRIVA [Concomitant]
     Active Substance: TIOTROPIUM BROMIDE MONOHYDRATE
     Indication: PRODUCT USED FOR UNKNOWN INDICATION
     Route: 065
  12. XOLAIR [Suspect]
     Active Substance: OMALIZUMAB
     Route: 058
     Dates: start: 20150210
  13. XOLAIR [Suspect]
     Active Substance: OMALIZUMAB
     Route: 058
     Dates: start: 20170914
  14. XOLAIR [Suspect]
     Active Substance: OMALIZUMAB
     Route: 058
     Dates: start: 20150505

REACTIONS (32)
  - Asthmatic crisis [Unknown]
  - Diverticulitis [Recovered/Resolved]
  - Fatigue [Unknown]
  - Postoperative wound infection [Unknown]
  - Rhinorrhoea [Unknown]
  - Neuralgia [Unknown]
  - Weight decreased [Unknown]
  - Sleep disorder [Unknown]
  - Back pain [Recovered/Resolved]
  - Angina unstable [Unknown]
  - Headache [Recovered/Resolved]
  - Cerebrovascular accident [Unknown]
  - Wound [Recovering/Resolving]
  - Accident [Unknown]
  - Cardiac discomfort [Unknown]
  - Influenza [Unknown]
  - Hypoaesthesia [Unknown]
  - Ingrowing nail [Unknown]
  - Dyspnoea [Unknown]
  - Bronchitis [Unknown]
  - Blood pressure systolic increased [Unknown]
  - Angina pectoris [Unknown]
  - Pneumothorax [Unknown]
  - Malignant melanoma [Unknown]
  - Neck pain [Unknown]
  - Body temperature decreased [Unknown]
  - Lower respiratory tract congestion [Unknown]
  - Nasopharyngitis [Recovering/Resolving]
  - Muscle spasms [Unknown]
  - Limb crushing injury [Unknown]
  - Pneumonia [Unknown]
  - Pulmonary oedema [Recovered/Resolved]

NARRATIVE: CASE EVENT DATE: 201208
